FAERS Safety Report 12594900 (Version 1)
Quarter: 2016Q3

REPORT INFORMATION
  Report Type: Spontaneous
  Country: RU (occurrence: RU)
  Receive Date: 20160726
  Receipt Date: 20160726
  Transmission Date: 20161109
  Serious: Yes (Disabling)
  Sender: FDA-Public Use
  Company Number: RU-TEVA-677768ISR

PATIENT
  Age: 40 Year
  Sex: Female

DRUGS (1)
  1. MYCOPHENOLATE-TEVA [Suspect]
     Active Substance: MYCOPHENOLATE MOFETIL

REACTIONS (4)
  - Dermatitis [Recovering/Resolving]
  - Swelling face [Recovering/Resolving]
  - Hyperaemia [Recovering/Resolving]
  - Skin exfoliation [Recovering/Resolving]
